FAERS Safety Report 13226126 (Version 1)
Quarter: 2017Q1

REPORT INFORMATION
  Report Type: Spontaneous
  Country: US (occurrence: US)
  Receive Date: 20170213
  Receipt Date: 20170213
  Transmission Date: 20170428
  Serious: No
  Sender: FDA-Public Use
  Company Number: None

PATIENT
  Age: 63 Year
  Sex: Female
  Weight: 72 kg

DRUGS (12)
  1. ASPIRIN. [Concomitant]
     Active Substance: ASPIRIN
  2. QVAR INHALER [Concomitant]
  3. STOOL SOFTNER [Concomitant]
  4. HCTZ [Concomitant]
     Active Substance: HYDROCHLOROTHIAZIDE
  5. VERAPAMIL [Concomitant]
     Active Substance: VERAPAMIL HYDROCHLORIDE
  6. SINGULAIR [Concomitant]
     Active Substance: MONTELUKAST SODIUM
  7. FIBER PILLS [Concomitant]
  8. FISH OIL SUPPLEMENT [Concomitant]
     Active Substance: FISH OIL
  9. NALTREXONE [Suspect]
     Active Substance: NALTREXONE
     Indication: NEUROPATHY PERIPHERAL
     Dosage: ?          QUANTITY:30 TABLET(S);?
     Route: 048
     Dates: start: 20170110, end: 20170210
  10. GABAPENTIN. [Concomitant]
     Active Substance: GABAPENTIN
  11. RELAFEN [Concomitant]
     Active Substance: NABUMETONE
  12. CALTRATE [Concomitant]
     Active Substance: CALCIUM CARBONATE

REACTIONS (8)
  - Abdominal discomfort [None]
  - Drug intolerance [None]
  - Abdominal pain upper [None]
  - Muscle spasms [None]
  - Agitation [None]
  - Insomnia [None]
  - Vomiting [None]
  - Headache [None]

NARRATIVE: CASE EVENT DATE: 20170210
